FAERS Safety Report 14750137 (Version 1)
Quarter: 2018Q2

REPORT INFORMATION
  Report Type: Spontaneous
  Country: JP (occurrence: JP)
  Receive Date: 20180412
  Receipt Date: 20180412
  Transmission Date: 20180711
  Serious: Yes (Life-Threatening, Other)
  Sender: FDA-Public Use
  Company Number: JP-009507513-1804JPN000124J

PATIENT
  Age: 56 Year
  Sex: Male
  Weight: 72 kg

DRUGS (28)
  1. NEXIUM [Concomitant]
     Active Substance: ESOMEPRAZOLE MAGNESIUM
     Dosage: 20 MG, QD
     Route: 048
  2. PURSENNID [Concomitant]
     Active Substance: SENNOSIDES A AND B
     Dosage: 24 MG, QD
     Route: 048
     Dates: start: 20180325, end: 20180328
  3. PURSENNID [Concomitant]
     Active Substance: SENNOSIDES A AND B
     Dosage: 24 MG, QD
     Route: 048
     Dates: start: 20180330, end: 20180401
  4. DOPAMINE HYDROCHLORIDE. [Concomitant]
     Active Substance: DOPAMINE HYDROCHLORIDE
     Dosage: 9.3 ML, UNK
     Route: 042
     Dates: start: 20180330, end: 20180330
  5. SEVOFLURANE. [Concomitant]
     Active Substance: SEVOFLURANE
     Dosage: 63 ML, UNK
     Route: 055
     Dates: start: 20180330, end: 20180330
  6. ESLAX INTRAVENOUS 50MG/5.0ML [Concomitant]
     Active Substance: ROCURONIUM BROMIDE
     Dosage: 130 MG, UNK
     Route: 042
     Dates: start: 20180330, end: 20180330
  7. PRIMPERAN [Concomitant]
     Active Substance: METOCLOPRAMIDE HYDROCHLORIDE
     Dosage: 10 MG, UNK
     Route: 042
     Dates: start: 20180330, end: 20180330
  8. MICARDIS [Concomitant]
     Active Substance: TELMISARTAN
     Dosage: 40 MG, QD
     Route: 048
  9. LAXOBERON [Concomitant]
     Active Substance: SODIUM PICOSULFATE
     Dosage: 10 ML, QD
     Route: 048
     Dates: start: 20180329, end: 20180329
  10. ULTIVA [Concomitant]
     Active Substance: REMIFENTANIL HYDROCHLORIDE
     Dosage: 30.9 ML, UNK
     Route: 042
     Dates: start: 20180330, end: 20180330
  11. PRECEDEX [Concomitant]
     Active Substance: DEXMEDETOMIDINE HYDROCHLORIDE
     Dosage: 13.2 ML, UNK
     Route: 042
     Dates: start: 20180330, end: 20180330
  12. SAMSCA [Concomitant]
     Active Substance: TOLVAPTAN
     Dosage: 7.5 MG, QD
     Route: 048
  13. PERDIPINE [Concomitant]
     Active Substance: NICARDIPINE HYDROCHLORIDE
     Dosage: 4.2 MG, UNK
     Route: 042
     Dates: start: 20180330, end: 20180330
  14. PURSENNID [Concomitant]
     Active Substance: SENNOSIDES A AND B
     Dosage: 48 MG, QD
     Route: 048
  15. ADALAT CC [Concomitant]
     Active Substance: NIFEDIPINE
     Dosage: 80 MG, BID
     Route: 048
  16. PROPOFOL. [Concomitant]
     Active Substance: PROPOFOL
     Dosage: 100 MG, UNK
     Route: 042
     Dates: start: 20180330, end: 20180330
  17. HEPARIN SODIUM. [Concomitant]
     Active Substance: HEPARIN SODIUM
     Dosage: 13.0 ML, UNK
     Route: 042
     Dates: start: 20180330, end: 20180330
  18. LOXOPROFEN NA [Concomitant]
     Active Substance: LOXOPROFEN SODIUM
     Dosage: 180 MG, TID
     Route: 048
  19. MAINTATE [Concomitant]
     Active Substance: BISOPROLOL FUMARATE
     Dosage: 5 MG, BID
     Route: 048
  20. LIVALO [Concomitant]
     Active Substance: PITAVASTATIN CALCIUM
     Dosage: 2 MG, QD
     Route: 048
  21. PURSENNID [Concomitant]
     Active Substance: SENNOSIDES A AND B
     Dosage: 48 MG, QD
     Route: 048
     Dates: start: 20180329, end: 20180329
  22. REBAMIPIDE [Concomitant]
     Active Substance: REBAMIPIDE
     Dosage: 300 MG, TID
     Route: 048
  23. AMLODIPINE [Concomitant]
     Active Substance: AMLODIPINE BESYLATE
     Dosage: 5 MG, QD
     Route: 048
  24. LECICARBON [Concomitant]
     Active Substance: SODIUM BICARBONATE\SODIUM PHOSPHATE, MONOBASIC
     Dosage: 1 DF, UNK
     Route: 054
  25. OXYGEN. [Concomitant]
     Active Substance: OXYGEN
     Dosage: 571.3 L, UNK
     Route: 055
     Dates: start: 20180330, end: 20180330
  26. BRIDION [Suspect]
     Active Substance: SUGAMMADEX
     Indication: NEUROMUSCULAR BLOCKADE REVERSAL
     Dosage: 100 MG, UNK
     Route: 042
     Dates: start: 20180330, end: 20180330
  27. ZADITEN [Concomitant]
     Active Substance: KETOTIFEN FUMARATE
     Dosage: 1 DF, UNK
     Route: 047
     Dates: start: 20180326, end: 20180326
  28. RAVONAL [Concomitant]
     Active Substance: THIOPENTAL
     Dosage: 997 MG, UNK
     Route: 042
     Dates: start: 20180330, end: 20180330

REACTIONS (4)
  - Anaphylactic reaction [Recovered/Resolved]
  - Electrocardiogram ST segment depression [Recovered/Resolved]
  - Blood pressure decreased [Recovered/Resolved]
  - Bradycardia [Recovered/Resolved]

NARRATIVE: CASE EVENT DATE: 20180330
